FAERS Safety Report 19938980 (Version 2)
Quarter: 2021Q4

REPORT INFORMATION
  Report Type: Spontaneous
  Country: JP (occurrence: JP)
  Receive Date: 20211011
  Receipt Date: 20211213
  Transmission Date: 20220303
  Serious: Yes (Hospitalization, Other)
  Sender: FDA-Public Use
  Company Number: JP-ASTELLAS-2021JP019211

PATIENT
  Age: 26 Year
  Sex: Male

DRUGS (7)
  1. XOSPATA [Suspect]
     Active Substance: GILTERITINIB
     Indication: Acute myeloid leukaemia
     Route: 048
     Dates: start: 201906
  2. URSO [Concomitant]
     Active Substance: URSODIOL
     Indication: Product used for unknown indication
     Dosage: 600 MG/DAY, UNKNOWN FREQ.
     Route: 048
  3. URSO [Concomitant]
     Active Substance: URSODIOL
     Dosage: 100 MG/DAY, UNKNOWN FREQ.
     Route: 048
  4. SULFAMETHOXAZOLE AND TRIMETHOPRIM [Concomitant]
     Active Substance: SULFAMETHOXAZOLE\TRIMETHOPRIM
     Indication: Prophylaxis
     Dosage: UNK UNK, THRICE WEEKLY
     Route: 048
  5. SULFAMETHOXAZOLE AND TRIMETHOPRIM [Concomitant]
     Active Substance: SULFAMETHOXAZOLE\TRIMETHOPRIM
     Dosage: 0.5 TABLET, ONCE WEEKLY
     Route: 048
  6. SULFAMETHOXAZOLE AND TRIMETHOPRIM [Concomitant]
     Active Substance: SULFAMETHOXAZOLE\TRIMETHOPRIM
     Dosage: 2 TABLETS/DAY, UNKNOWN FREQ.
     Route: 048
  7. ACYCLOVIR [Concomitant]
     Active Substance: ACYCLOVIR
     Indication: Antiviral prophylaxis
     Dosage: 200 MG/DAY, UNKNOWN FREQ.
     Route: 048

REACTIONS (1)
  - Pneumocystis jirovecii pneumonia [Recovered/Resolved]
